FAERS Safety Report 6165129-9 (Version None)
Quarter: 2009Q2

REPORT INFORMATION
  Report Type: 
  Country: None (occurrence: None)
  Receive Date: 20090421
  Receipt Date: 20090421
  Transmission Date: 20091009
  Serious: Yes (Other)
  Sender: FDA-Public Use
  Company Number: None

PATIENT
  Age: 84 Year
  Sex: Female
  Weight: 47.6277 kg

DRUGS (1)
  1. PANGESTYME EC UNKNOWN [Suspect]
     Indication: PANCREATITIS CHRONIC
     Dosage: 2 CAPSULES PER MEAL PO
     Route: 048
     Dates: start: 20090101, end: 20090115

REACTIONS (4)
  - ABDOMINAL PAIN [None]
  - DIARRHOEA [None]
  - MALABSORPTION [None]
  - PRODUCT SUBSTITUTION ISSUE [None]
